FAERS Safety Report 24963403 (Version 1)
Quarter: 2025Q1

REPORT INFORMATION
  Report Type: Report from Study
  Country: US (occurrence: US)
  Receive Date: 20250213
  Receipt Date: 20250213
  Transmission Date: 20250408
  Serious: Yes (Other)
  Sender: ASTELLAS
  Company Number: US-ASTELLAS-2025-AER-007410

PATIENT
  Age: 59 Year
  Sex: Male

DRUGS (1)
  1. ENZALUTAMIDE [Suspect]
     Active Substance: ENZALUTAMIDE
     Indication: Prostate cancer
     Route: 048

REACTIONS (6)
  - Neuropathy peripheral [Unknown]
  - Malignant neoplasm progression [Unknown]
  - Arthralgia [Unknown]
  - Back pain [Unknown]
  - Restless legs syndrome [Unknown]
  - Fatigue [Unknown]
